FAERS Safety Report 5393410-X (Version None)
Quarter: 2007Q3

REPORT INFORMATION
  Report Type: 
  Country: None (occurrence: None)
  Receive Date: 20070723
  Receipt Date: 20070711
  Transmission Date: 20080115
  Serious: Yes (Hospitalization)
  Sender: FDA-Public Use
  Company Number: US-KINGPHARMUSA00001-K200700887

PATIENT

DRUGS (10)
  1. ALTACE [Suspect]
     Dosage: 5 MG, QD
     Route: 048
     Dates: start: 20060201
  2. SEROQUEL [Suspect]
     Dosage: 150 MG, QD
     Route: 048
     Dates: start: 20070215, end: 20070215
  3. SEROQUEL [Suspect]
     Dosage: 300 MG, QD
     Route: 048
     Dates: start: 20070216, end: 20070216
  4. SEROQUEL [Suspect]
     Dosage: 450 MG, QD
     Route: 048
     Dates: start: 20070217, end: 20070217
  5. SEROQUEL [Suspect]
     Dosage: 600 MG, QD
     Route: 048
     Dates: start: 20070218, end: 20070219
  6. SEROQUEL [Suspect]
     Dosage: 300 MG, QD
     Route: 048
     Dates: start: 20070220, end: 20070221
  7. NORVASC [Suspect]
     Dosage: 5 MG, QD
     Route: 048
     Dates: start: 20070215, end: 20070217
  8. LORAZEPAM [Concomitant]
     Dosage: 3.5 MG, UNK
     Route: 048
     Dates: start: 20070215, end: 20070217
  9. LORAZEPAM [Concomitant]
     Dosage: 2 MG, UNK
     Route: 048
     Dates: start: 20070218
  10. PANTAZOL [Concomitant]
     Dosage: 40 MG, UNK
     Route: 048
     Dates: start: 20070218

REACTIONS (12)
  - ASTHENIA [None]
  - ATRIAL FIBRILLATION [None]
  - ATRIAL FLUTTER [None]
  - BLOOD PRESSURE DECREASED [None]
  - DIZZINESS [None]
  - DRUG INTERACTION POTENTIATION [None]
  - FALL [None]
  - PALPITATIONS [None]
  - RIB FRACTURE [None]
  - SYNCOPE [None]
  - TACHYARRHYTHMIA [None]
  - UNEVALUABLE EVENT [None]
